FAERS Safety Report 23429717 (Version 1)
Quarter: 2024Q1

REPORT INFORMATION
  Report Type: Spontaneous
  Country: US (occurrence: US)
  Receive Date: 20240122
  Receipt Date: 20240122
  Transmission Date: 20240409
  Serious: No
  Sender: FDA-Public Use
  Company Number: US-INCYTE CORPORATION-2023IN013520

PATIENT

DRUGS (1)
  1. OPZELURA [Suspect]
     Active Substance: RUXOLITINIB PHOSPHATE
     Dosage: 1.5% CREAM 60 GM, BID (APPLY A THIN LAYER TO AFFECTED AREA(S) TWICE DAILY AS DIRECTED)
     Route: 061

REACTIONS (1)
  - Nasopharyngitis [Unknown]
